FAERS Safety Report 6316965-7 (Version None)
Quarter: 2009Q3

REPORT INFORMATION
  Report Type: 
  Country: None (occurrence: None)
  Receive Date: 20090820
  Receipt Date: 20090811
  Transmission Date: 20100115
  Serious: Yes (Hospitalization)
  Sender: FDA-Public Use
  Company Number: PHHO2009NL09920

PATIENT
  Sex: Male
  Weight: 67.9 kg

DRUGS (2)
  1. EXELON [Suspect]
     Indication: DEMENTIA
     Dosage: U4.6 MG/24 HRS
     Route: 058
  2. CIPRAMIL [Concomitant]
     Indication: DEPRESSION

REACTIONS (4)
  - BRONCHOPNEUMONIA [None]
  - CONFUSIONAL STATE [None]
  - DISEASE PROGRESSION [None]
  - WEIGHT DECREASED [None]
